FAERS Safety Report 7565923-3 (Version None)
Quarter: 2011Q2

REPORT INFORMATION
  Report Type: 
  Country: None (occurrence: None)
  Receive Date: 20110623
  Receipt Date: 20110620
  Transmission Date: 20111010
  Serious: Yes (Hospitalization, Other)
  Sender: FDA-Public Use
  Company Number: US-AMGEN-USASP2011031598

PATIENT
  Age: 62 Year
  Sex: Male

DRUGS (13)
  1. CODEINE [Concomitant]
     Dosage: UNK
  2. LANTUS [Concomitant]
     Dosage: UNK
  3. FENTANYL [Concomitant]
  4. ASPIRIN [Concomitant]
     Dosage: 1 MG, UNK
  5. LIPITOR [Concomitant]
  6. LABETALOL HCL [Concomitant]
  7. DOCUSATE [Concomitant]
  8. CEFEPIME [Concomitant]
  9. GABAPENTIN [Concomitant]
  10. NOVOLOG [Concomitant]
  11. NPLATE [Suspect]
     Indication: IDIOPATHIC THROMBOCYTOPENIC PURPURA
     Dates: start: 20110504
  12. NPLATE [Suspect]
     Dosage: 140 A?G, UNK
     Dates: start: 20110504
  13. PRAZOSIN HCL [Concomitant]

REACTIONS (3)
  - WHITE BLOOD CELL COUNT INCREASED [None]
  - WEIGHT INCREASED [None]
  - THROMBOTIC STROKE [None]
